FAERS Safety Report 18841552 (Version 6)
Quarter: 2021Q3

REPORT INFORMATION
  Report Type: Spontaneous
  Country: BG (occurrence: BG)
  Receive Date: 20210204
  Receipt Date: 20210804
  Transmission Date: 20211014
  Serious: Yes (Other)
  Sender: FDA-Public Use
  Company Number: BG-AMGEN-BGRNI2021014856

PATIENT
  Age: 70 Year
  Sex: Male
  Weight: 75 kg

DRUGS (24)
  1. OXYCODONE [Concomitant]
     Active Substance: OXYCODONE
     Dosage: 0.5 UNK, QD
     Dates: start: 20201208
  2. CAVINTON [Concomitant]
     Active Substance: VINPOCETINE
     Dosage: UNK, QD
     Dates: start: 20210324, end: 20210329
  3. CARBOPLATIN. [Suspect]
     Active Substance: CARBOPLATIN
     Indication: NON-SMALL CELL LUNG CANCER
     Dosage: 480 MILLIGRAM
     Route: 065
     Dates: start: 20201002
  4. ATEZOLIZUMAB. [Suspect]
     Active Substance: ATEZOLIZUMAB
     Dosage: 1200 MILLIGRAM, Q3WK
     Route: 041
     Dates: start: 20201002
  5. ANORO ELLIPTA [Concomitant]
     Active Substance: UMECLIDINIUM BROMIDE\VILANTEROL TRIFENATATE
     Dosage: UNK, QD
     Dates: start: 2017
  6. OXYCODONE [Concomitant]
     Active Substance: OXYCODONE
     Dosage: UNK
     Dates: start: 20210302
  7. BEVACIZUMAB. [Suspect]
     Active Substance: BEVACIZUMAB
     Indication: NON-SMALL CELL LUNG CANCER
     Dosage: 1100 MILLIGRAM
     Route: 065
     Dates: start: 20201002
  8. ATEZOLIZUMAB. [Suspect]
     Active Substance: ATEZOLIZUMAB
     Dosage: 1200 MILLIGRAM, Q3WK
     Route: 042
     Dates: start: 20201208
  9. PARACETAMOL [Concomitant]
     Active Substance: ACETAMINOPHEN
     Indication: CHILLS
     Dosage: 0.5 UNK, QD
     Dates: start: 20201001, end: 20201001
  10. SODIUM CHLORIDE. [Concomitant]
     Active Substance: SODIUM CHLORIDE
     Dosage: UNK UNK, QD
     Dates: start: 20210324, end: 20210329
  11. ATEZOLIZUMAB. [Suspect]
     Active Substance: ATEZOLIZUMAB
     Dosage: 1100 MILLIGRAM
     Route: 042
     Dates: start: 20201002
  12. FLIXOTIDE [Concomitant]
     Active Substance: FLUTICASONE PROPIONATE
     Dosage: 0.5 UNK, QD
     Dates: start: 2017
  13. DEXAMETHASONE. [Concomitant]
     Active Substance: DEXAMETHASONE
     Dosage: UNK, QD
     Dates: start: 20210324, end: 20210329
  14. ATEZOLIZUMAB. [Suspect]
     Active Substance: ATEZOLIZUMAB
     Indication: NON-SMALL CELL LUNG CANCER
     Dosage: 1200 MILLIGRAM
     Route: 042
     Dates: start: 20200910
  15. ATEZOLIZUMAB. [Suspect]
     Active Substance: ATEZOLIZUMAB
     Dosage: 1200 MILLIGRAM, Q3WK
     Route: 042
     Dates: start: 20201229
  16. NOOTROPIL [Concomitant]
     Active Substance: PIRACETAM
     Dosage: UNK UNK, QD
     Dates: start: 20210324, end: 20210329
  17. MANNITOL. [Concomitant]
     Active Substance: MANNITOL
     Dosage: UNK UNK, QD
     Dates: start: 20210324, end: 20210329
  18. NEURITOGEN [Concomitant]
     Active Substance: DIETARY SUPPLEMENT\HERBALS
     Dosage: UNK, QD
     Dates: start: 20210519
  19. ATEZOLIZUMAB. [Suspect]
     Active Substance: ATEZOLIZUMAB
     Dosage: 1200 MILLIGRAM, Q3WK
     Route: 042
     Dates: start: 20201113
  20. CONCOR [Concomitant]
     Active Substance: BISOPROLOL FUMARATE
     Indication: HYPERTENSION
     Dosage: UNK, QD
     Dates: start: 202007
  21. OLSART [Concomitant]
     Indication: HYPERTENSION
     Dosage: UNK, QD
     Dates: start: 202007
  22. PACLITAXEL. [Suspect]
     Active Substance: PACLITAXEL
     Indication: NON-SMALL CELL LUNG CANCER
     Dosage: 300 MILLIGRAM
     Route: 065
     Dates: start: 20201002
  23. ATEZOLIZUMAB. [Suspect]
     Active Substance: ATEZOLIZUMAB
     Dosage: 1200 MILLIGRAM, Q3WK
     Route: 042
     Dates: start: 20201022
  24. XARELTO [Concomitant]
     Active Substance: RIVAROXABAN
     Indication: ARRHYTHMIA
     Dosage: 0.5 UNK, QD
     Dates: start: 20201106

REACTIONS (1)
  - Polyarthritis [Recovered/Resolved]

NARRATIVE: CASE EVENT DATE: 20201215
